FAERS Safety Report 6179298-8 (Version None)
Quarter: 2009Q2

REPORT INFORMATION
  Report Type: 
  Country: None (occurrence: None)
  Receive Date: 20090430
  Receipt Date: 20090416
  Transmission Date: 20091009
  Serious: Yes (Hospitalization, Other)
  Sender: FDA-Public Use
  Company Number: 232671K09USA

PATIENT
  Age: 67 Year
  Sex: Female
  Weight: 61 kg

DRUGS (6)
  1. REBIF [Suspect]
     Indication: MULTIPLE SCLEROSIS
     Dosage: 44 MCG, 3 IN 1 WEEKS, SUBCUTANEOUS
     Route: 058
     Dates: start: 20041104
  2. SPIRIVA [Concomitant]
  3. PULMICORT [Concomitant]
  4. TWO OTHER UNSPECIFIED LUNG MEDICATION (ALL OTHER THERAPEUTIC PRODUCTS) [Concomitant]
  5. LISINOPRIL [Concomitant]
  6. UNSPECIFIED SLEEPING PILL (ALL OTHER THERAPEUTIC PRODUCTS) [Concomitant]

REACTIONS (4)
  - BLOOD PRESSURE INCREASED [None]
  - DEVICE OCCLUSION [None]
  - DYSPNOEA [None]
  - HYPERSENSITIVITY [None]
